FAERS Safety Report 21057389 (Version 2)
Quarter: 2022Q3

REPORT INFORMATION
  Report Type: Spontaneous
  Country: NZ (occurrence: None)
  Receive Date: 20220708
  Receipt Date: 20220809
  Transmission Date: 20221026
  Serious: Yes (Other)
  Sender: FDA-Public Use
  Company Number: NZ-ROCHE-3132985

PATIENT
  Sex: Female

DRUGS (8)
  1. TOCILIZUMAB [Suspect]
     Active Substance: TOCILIZUMAB
     Indication: Rheumatoid arthritis
     Route: 065
     Dates: start: 202002, end: 202003
  2. PREDNISONE [Concomitant]
     Active Substance: PREDNISONE
  3. METHOTREXATE [Concomitant]
     Active Substance: METHOTREXATE
  4. CYCLOSPORINE [Concomitant]
     Active Substance: CYCLOSPORINE
  5. DAPSONE [Concomitant]
     Active Substance: DAPSONE
  6. CYCLOPHOSPHAMIDE [Concomitant]
     Active Substance: CYCLOPHOSPHAMIDE
  7. COLCHICINE [Concomitant]
     Active Substance: COLCHICINE
  8. INFLIXIMAB [Concomitant]
     Active Substance: INFLIXIMAB

REACTIONS (1)
  - Pyoderma gangrenosum [Unknown]
